FAERS Safety Report 8712775 (Version 4)
Quarter: 2013Q3

REPORT INFORMATION
  Report Type: Spontaneous
  Country: US (occurrence: None)
  Receive Date: 20120723
  Receipt Date: 20130815
  Transmission Date: 20140515
  Serious: Yes (Other)
  Sender: FDA-Public Use
  Company Number: ADR-2011-10250

PATIENT
  Age: 27 Year
  Sex: Male

DRUGS (1)
  1. LIORESAL [Suspect]
     Indication: CEREBRAL PALSY

REACTIONS (11)
  - Meningitis [None]
  - Implant site infection [None]
  - Wound infection staphylococcal [None]
  - Wound dehiscence [None]
  - Device deployment issue [None]
  - Renal failure [None]
  - Drug hypersensitivity [None]
  - Device connection issue [None]
  - Device failure [None]
  - Muscle spasticity [None]
  - Tinnitus [None]
